FAERS Safety Report 19379219 (Version 2)
Quarter: 2021Q2

REPORT INFORMATION
  Report Type: Other
  Country: GB (occurrence: GB)
  Receive Date: 20210607
  Receipt Date: 20210629
  Transmission Date: 20210717
  Serious: Yes (Disabling, Other)
  Sender: FDA-Public Use
  Company Number: GB-GLENMARK PHARMACEUTICALS-2021GMK054289

PATIENT

DRUGS (1)
  1. MONTELUKAST SODIUM. [Suspect]
     Active Substance: MONTELUKAST SODIUM
     Indication: ASTHMA
     Dosage: 4 MILLIGRAM
     Route: 048
     Dates: start: 20141201, end: 20200501

REACTIONS (14)
  - Productive cough [Unknown]
  - Psychomotor hyperactivity [Unknown]
  - Nightmare [Unknown]
  - Nausea [Unknown]
  - Learning disorder [Unknown]
  - Sleep disorder [Recovering/Resolving]
  - Suicidal ideation [Unknown]
  - Aggression [Unknown]
  - Pyrexia [Unknown]
  - Disturbance in attention [Unknown]
  - Mood altered [Unknown]
  - Hypersensitivity [Unknown]
  - Sleep terror [Unknown]
  - Headache [Unknown]
